FAERS Safety Report 18050935 (Version 2)
Quarter: 2020Q3

REPORT INFORMATION
  Report Type: Spontaneous
  Country: FR (occurrence: FR)
  Receive Date: 20200721
  Receipt Date: 20200821
  Transmission Date: 20201103
  Serious: Yes (Hospitalization, Other)
  Sender: FDA-Public Use
  Company Number: FR-ALLERGAN-2026923US

PATIENT
  Sex: Female

DRUGS (2)
  1. CHLOROQUINE. [Interacting]
     Active Substance: CHLOROQUINE
     Indication: COVID-19 PROPHYLAXIS
     Route: 065
  2. ESCITALOPRAM OXALATE ? BP [Suspect]
     Active Substance: ESCITALOPRAM OXALATE
     Indication: ANXIETY
     Dosage: FOR SEVERAL YEARS
     Route: 065

REACTIONS (4)
  - Self-medication [Unknown]
  - Psychotic disorder [Unknown]
  - Toxicity to various agents [Unknown]
  - Drug interaction [Unknown]
